FAERS Safety Report 17375359 (Version 1)
Quarter: 2020Q1

REPORT INFORMATION
  Report Type: Spontaneous
  Country: US (occurrence: US)
  Receive Date: 20200122
  Receipt Date: 20200122
  Transmission Date: 20200409
  Serious: Yes (Hospitalization)
  Sender: FDA-Public Use
  Company Number: None

PATIENT
  Sex: Male

DRUGS (8)
  1. PHENTERMINE. [Concomitant]
     Active Substance: PHENTERMINE
  2. CEPHALEXIN. [Concomitant]
     Active Substance: CEPHALEXIN
  3. FEROSUL [Concomitant]
     Active Substance: FERROUS SULFATE
  4. MUPIROCIN. [Concomitant]
     Active Substance: MUPIROCIN
  5. STELARA [Suspect]
     Active Substance: USTEKINUMAB
     Indication: CROHN^S DISEASE
     Dosage: 1 SYR :Q2M;?
     Route: 058
     Dates: start: 20191201
  6. VITAMIN D3 [Concomitant]
     Active Substance: CHOLECALCIFEROL
  7. CYANOCOBALAM [Concomitant]
     Active Substance: CYANOCOBALAMIN
  8. SMZ/TMP DS [Concomitant]
     Active Substance: SULFAMETHOXAZOLE\TRIMETHOPRIM

REACTIONS (1)
  - Hospitalisation [None]
